FAERS Safety Report 8892580 (Version 1)
Quarter: 2012Q4

REPORT INFORMATION
  Report Type: Spontaneous
  Country: US (occurrence: None)
  Receive Date: 20121105
  Receipt Date: 20121105
  Transmission Date: 20130627
  Serious: Yes (Hospitalization)
  Sender: FDA-Public Use
  Company Number: None

PATIENT
  Age: 73 Year
  Sex: Male
  Weight: 77 kg

DRUGS (2)
  1. PRADAXA [Suspect]
     Route: 048
  2. PRADAXA [Suspect]
     Route: 048

REACTIONS (6)
  - Hypotension [None]
  - Syncope [None]
  - Fall [None]
  - Haemorrhage [None]
  - Haematochezia [None]
  - Renal impairment [None]
